FAERS Safety Report 16218047 (Version 1)
Quarter: 2019Q2

REPORT INFORMATION
  Report Type: Spontaneous
  Country: US (occurrence: US)
  Receive Date: 20190419
  Receipt Date: 20190419
  Transmission Date: 20190711
  Serious: No
  Sender: FDA-Public Use
  Company Number: US-SSM HEALTH ST. CLARE HOSPITAL-2066048

PATIENT

DRUGS (1)
  1. SUCCINYLCHOLINE CHLORIDE 20MG/ML 5 MLS IN SYRINGE (REPACKAGED) [Suspect]
     Active Substance: SUCCINYLCHOLINE CHLORIDE

REACTIONS (1)
  - Drug ineffective [Recovered/Resolved]
